FAERS Safety Report 6995897-5 (Version None)
Quarter: 2010Q3

REPORT INFORMATION
  Report Type: 
  Country: None (occurrence: None)
  Receive Date: 20100918
  Receipt Date: 20081112
  Transmission Date: 20110219
  Serious: No
  Sender: FDA-Public Use
  Company Number: US-WYE-H06825508

PATIENT
  Sex: Female

DRUGS (4)
  1. EFFEXOR XR [Suspect]
     Indication: POSTPARTUM DEPRESSION
     Route: 048
     Dates: start: 20010101, end: 20080101
  2. EFFEXOR XR [Suspect]
     Dosage: ^TRYING TO LOWER DOSE AND GET OFF PRODUCT^
     Route: 048
     Dates: start: 20080101
  3. PRAMIPEXOLE DIHYDROCHLORIDE [Concomitant]
  4. LISINOPRIL AND HYDROCHLOROTHIAZIDE [Concomitant]

REACTIONS (4)
  - ABNORMAL DREAMS [None]
  - DRUG WITHDRAWAL SYNDROME [None]
  - INSOMNIA [None]
  - PARAESTHESIA [None]
